FAERS Safety Report 8836970 (Version 2)
Quarter: 2012Q4

REPORT INFORMATION
  Report Type: 
  Country: JP (occurrence: JP)
  Receive Date: 20121012
  Receipt Date: 20121022
  Transmission Date: 20130627
  Serious: Yes (Other)
  Sender: FDA-Public Use
  Company Number: JP-UCBSA-068433

PATIENT
  Age: 5 Year
  Sex: Female

DRUGS (1)
  1. E KEPPRA [Suspect]
     Route: 048

REACTIONS (1)
  - Hypoglycaemia [Unknown]
